FAERS Safety Report 13673412 (Version 1)
Quarter: 2017Q2

REPORT INFORMATION
  Report Type: Spontaneous
  Country: DK (occurrence: DK)
  Receive Date: 20170621
  Receipt Date: 20170621
  Transmission Date: 20170830
  Serious: Yes (Other)
  Sender: FDA-Public Use
  Company Number: DK-MYLANLABS-2017M1036953

PATIENT

DRUGS (3)
  1. DOLOPROCT                          /00951901/ [Concomitant]
     Indication: HAEMORRHOIDS
     Route: 061
  2. PROCTOSEDYL [Concomitant]
     Active Substance: DIBUCAINE HYDROCHLORIDE\HYDROCORTISONE
     Indication: HAEMORRHOIDS
     Route: 061
  3. DILTIAZEM. [Suspect]
     Active Substance: DILTIAZEM
     Indication: ANAL FISSURE
     Dosage: 2%
     Route: 061

REACTIONS (1)
  - Dermatitis contact [Recovered/Resolved]
